FAERS Safety Report 6367281-9 (Version None)
Quarter: 2009Q3

REPORT INFORMATION
  Report Type: 
  Country: None (occurrence: None)
  Receive Date: 20090821
  Receipt Date: 20090701
  Transmission Date: 20100115
  Serious: No
  Sender: FDA-Public Use
  Company Number: 8044653

PATIENT
  Age: 43 Year
  Sex: Female
  Weight: 80.2 kg

DRUGS (6)
  1. CIMZIA [Suspect]
     Indication: CROHN'S DISEASE
     Dosage: 400 MG 1/2W SC
     Route: 058
     Dates: start: 20080920, end: 20081022
  2. CIMZIA [Suspect]
     Indication: CROHN'S DISEASE
     Dosage: 400 MG /M SC
     Route: 058
     Dates: start: 20090114
  3. AMBIEN CR [Concomitant]
  4. METOPROLOL [Concomitant]
  5. CHANTIX [Concomitant]
  6. NORETHINDRONE AND ETHINYL ESTRADIOL [Concomitant]

REACTIONS (6)
  - FURUNCLE [None]
  - INAPPROPRIATE SCHEDULE OF DRUG ADMINISTRATION [None]
  - RASH [None]
  - RASH MACULAR [None]
  - SKIN IRRITATION [None]
  - STAPHYLOCOCCAL INFECTION [None]
